FAERS Safety Report 14695189 (Version 1)
Quarter: 2018Q1

REPORT INFORMATION
  Report Type: Spontaneous
  Country: US (occurrence: US)
  Receive Date: 20180329
  Receipt Date: 20180329
  Transmission Date: 20180509
  Serious: No
  Sender: FDA-Public Use
  Company Number: US-UPSHER-SMITH LABORATORIES, LLC-2017USL00271

PATIENT
  Sex: Female

DRUGS (2)
  1. PREVALITE [Suspect]
     Active Substance: CHOLESTYRAMINE
     Indication: ABNORMAL FAECES
     Dosage: 0.5 DOSAGE UNITS, UNK
     Route: 048
     Dates: start: 201709
  2. PREVALITE [Suspect]
     Active Substance: CHOLESTYRAMINE
     Dosage: 0.5 DOSAGE UNITS, UNK
     Route: 048
     Dates: end: 201709

REACTIONS (2)
  - Dyspepsia [Recovered/Resolved]
  - Drug ineffective for unapproved indication [Not Recovered/Not Resolved]

NARRATIVE: CASE EVENT DATE: 201709
